FAERS Safety Report 6984647-4 (Version None)
Quarter: 2010Q3

REPORT INFORMATION
  Report Type: 
  Country: None (occurrence: None)
  Receive Date: 20100913
  Receipt Date: 20100913
  Transmission Date: 20110219
  Serious: No
  Sender: FDA-Public Use
  Company Number: None

PATIENT
  Sex: Female
  Weight: 51.2565 kg

DRUGS (1)
  1. MALATHION [Suspect]
     Indication: LICE INFESTATION
     Dosage: ONE/2 FL. OZ
     Dates: start: 20100830

REACTIONS (2)
  - COUGH [None]
  - OROPHARYNGEAL PAIN [None]
